FAERS Safety Report 4545143-7 (Version None)
Quarter: 2004Q4

REPORT INFORMATION
  Report Type: 
  Country: None (occurrence: None)
  Receive Date: 20041222
  Receipt Date: 20041012
  Transmission Date: 20050328
  Serious: Yes (Hospitalization, Other)
  Sender: FDA-Public Use
  Company Number: USA041080849

PATIENT
  Sex: Female
  Weight: 73 kg

DRUGS (4)
  1. HUMALOG [Suspect]
     Indication: DIABETES MELLITUS
     Dosage: 55 U/2 DAY
     Dates: start: 19990101
  2. HUMALOG [Suspect]
     Indication: DIABETES MELLITUS
     Dates: start: 19940101, end: 19990101
  3. HUMULIN N [Suspect]
     Indication: DIABETES MELLITUS
     Dates: start: 19940101, end: 19990101
  4. LISINOPRIL [Concomitant]

REACTIONS (15)
  - AMNESIA [None]
  - BLOOD GLUCOSE DECREASED [None]
  - BLOOD GLUCOSE INCREASED [None]
  - BLOOD PRESSURE INCREASED [None]
  - BUNION [None]
  - DEPRESSION [None]
  - HEAD INJURY [None]
  - INJECTION SITE HAEMORRHAGE [None]
  - INTERVERTEBRAL DISC PROTRUSION [None]
  - JOINT RANGE OF MOTION DECREASED [None]
  - NEOPLASM SKIN [None]
  - PAIN IN EXTREMITY [None]
  - POST-TRAUMATIC SYNDROME [None]
  - ROAD TRAFFIC ACCIDENT [None]
  - TRAUMATIC BRAIN INJURY [None]
